FAERS Safety Report 9087332 (Version 1)
Quarter: 2013Q1

REPORT INFORMATION
  Report Type: Spontaneous
  Country: US (occurrence: US)
  Receive Date: 20130131
  Receipt Date: 20130131
  Transmission Date: 20140127
  Serious: Yes (Hospitalization, Other)
  Sender: FDA-Public Use
  Company Number: US-PFIZER INC-2013037220

PATIENT
  Age: 17 Year
  Sex: Male

DRUGS (1)
  1. LYRICA [Suspect]

REACTIONS (5)
  - Overdose [Unknown]
  - Drug abuse [Unknown]
  - Grand mal convulsion [Recovered/Resolved]
  - Drug level increased [Recovered/Resolved]
  - Drug screen positive [Unknown]
